FAERS Safety Report 19494632 (Version 1)
Quarter: 2021Q3

REPORT INFORMATION
  Report Type: Spontaneous
  Country: US (occurrence: US)
  Receive Date: 20210706
  Receipt Date: 20210706
  Transmission Date: 20211014
  Serious: No
  Sender: FDA-Public Use
  Company Number: US-AMGEN-USASP2021101462

PATIENT
  Age: 63 Year
  Sex: Female

DRUGS (14)
  1. OTEZLA [Suspect]
     Active Substance: APREMILAST
     Indication: PSORIASIS
     Dosage: 30 MILLIGRAM, BID
     Route: 048
     Dates: start: 20200117
  2. HYDROCHLOROTH [Concomitant]
     Active Substance: HYDROCHLOROTHIAZIDE
  3. BUPROPION. [Concomitant]
     Active Substance: BUPROPION
  4. ESOMEPRAZOLE. [Concomitant]
     Active Substance: ESOMEPRAZOLE MAGNESIUM
  5. MELOXICAM. [Concomitant]
     Active Substance: MELOXICAM
  6. FLUOXETINE [Concomitant]
     Active Substance: FLUOXETINE HYDROCHLORIDE
  7. FLUTICASONE. [Concomitant]
     Active Substance: FLUTICASONE
  8. ALPRAZOLAM. [Concomitant]
     Active Substance: ALPRAZOLAM
  9. CETRIZINE [Concomitant]
     Active Substance: CETIRIZINE HYDROCHLORIDE
  10. AZELASTINE. [Concomitant]
     Active Substance: AZELASTINE HYDROCHLORIDE
  11. MODAFINIL. [Concomitant]
     Active Substance: MODAFINIL
  12. OZEMPIC [Concomitant]
     Active Substance: SEMAGLUTIDE
  13. ROSUVASTATIN. [Concomitant]
     Active Substance: ROSUVASTATIN
  14. VITAMIN D [COLECALCIFEROL] [Concomitant]
     Active Substance: CHOLECALCIFEROL

REACTIONS (1)
  - Psoriasis [Not Recovered/Not Resolved]

NARRATIVE: CASE EVENT DATE: 202105
